FAERS Safety Report 14184862 (Version 1)
Quarter: 2017Q4

REPORT INFORMATION
  Report Type: Spontaneous
  Country: US (occurrence: US)
  Receive Date: 20171113
  Receipt Date: 20171113
  Transmission Date: 20180321
  Serious: No
  Sender: FDA-Public Use
  Company Number: US-BAUSCH-BL-2017-011333

PATIENT
  Age: 61 Year
  Sex: Female
  Weight: 50.85 kg

DRUGS (1)
  1. ALAWAY [Suspect]
     Active Substance: KETOTIFEN FUMARATE
     Indication: HYPERSENSITIVITY
     Dosage: IN EACH EYE: ONE OR MORE THAN ONE DROP TWICE OR MORE THAN TWICE DAILY AS NEEDED
     Route: 047
     Dates: start: 2016

REACTIONS (2)
  - Intraocular pressure increased [Unknown]
  - Off label use [Not Recovered/Not Resolved]

NARRATIVE: CASE EVENT DATE: 20170422
